FAERS Safety Report 4685996-5 (Version None)
Quarter: 2005Q2

REPORT INFORMATION
  Report Type: 
  Country: None (occurrence: None)
  Receive Date: 20050607
  Receipt Date: 20050607
  Transmission Date: 20051028
  Serious: Yes (Hospitalization)
  Sender: FDA-Public Use
  Company Number: None

PATIENT
  Age: 84 Year
  Sex: Male
  Weight: 74.8435 kg

DRUGS (1)
  1. PROPOXYPHENE HCL W/ APAP [Suspect]

REACTIONS (2)
  - DOCUMENTED HYPERSENSITIVITY TO ADMINISTERED DRUG [None]
  - HYPOAESTHESIA [None]
